FAERS Safety Report 14393481 (Version 1)
Quarter: 2018Q1

REPORT INFORMATION
  Report Type: Spontaneous
  Country: US (occurrence: US)
  Receive Date: 20180115
  Receipt Date: 20180115
  Transmission Date: 20180509
  Serious: Yes (Disabling)
  Sender: FDA-Public Use
  Company Number: None

PATIENT
  Sex: Female
  Weight: 58.5 kg

DRUGS (5)
  1. MULTI VITAMIN [Concomitant]
     Active Substance: VITAMINS
  2. OXYCODONE [Concomitant]
     Active Substance: OXYCODONE
  3. OMAPRAZOL [Concomitant]
  4. JUBLIA [Suspect]
     Active Substance: EFINACONAZOLE
     Indication: NAIL INFECTION
     Dosage: QUANTITY:1 DROP(S); AT BEDTIME?
     Route: 061
     Dates: start: 20170202, end: 20170202
  5. DIAZEPAM. [Concomitant]
     Active Substance: DIAZEPAM

REACTIONS (5)
  - Dermatitis [None]
  - Pruritus [None]
  - Pain [None]
  - Erythema [None]
  - Swelling [None]

NARRATIVE: CASE EVENT DATE: 20170208
